FAERS Safety Report 24769220 (Version 2)
Quarter: 2024Q4

REPORT INFORMATION
  Report Type: Spontaneous
  Country: FR (occurrence: FR)
  Receive Date: 20241224
  Receipt Date: 20241226
  Transmission Date: 20250115
  Serious: Yes (Other)
  Sender: ROCHE
  Company Number: None

PATIENT
  Age: 32 Year
  Sex: Female

DRUGS (2)
  1. XOLAIR [Suspect]
     Active Substance: OMALIZUMAB
     Indication: Urticaria chronic
     Dosage: UNK (INITIALLY 300 MG/DAYS EVERY 4 WEEKS, THEN SPACING TO 1 INJECTION/DAYS EVERY 5 WEEKS ON 11/28/20
     Route: 065
     Dates: start: 202311
  2. XOLAIR [Suspect]
     Active Substance: OMALIZUMAB
     Dosage: UNK, Q5W
     Route: 065
     Dates: start: 20241128

REACTIONS (3)
  - Mechanical urticaria [Recovered/Resolved]
  - Abortion spontaneous [Unknown]
  - Maternal exposure before pregnancy [Unknown]

NARRATIVE: CASE EVENT DATE: 20241127
